FAERS Safety Report 10093152 (Version 1)
Quarter: 2014Q2

REPORT INFORMATION
  Report Type: Spontaneous
  Country: US (occurrence: US)
  Receive Date: 20140421
  Receipt Date: 20140421
  Transmission Date: 20141212
  Serious: No
  Sender: FDA-Public Use
  Company Number: US-SA-2013SA106638

PATIENT
  Sex: Male

DRUGS (6)
  1. ALLEGRA [Suspect]
     Indication: EAR PAIN
  2. ALLEGRA [Suspect]
     Indication: MULTIPLE ALLERGIES
  3. ASPIRIN [Concomitant]
     Indication: MYOCARDIAL INFARCTION
  4. ASPIRIN [Concomitant]
     Indication: CEREBROVASCULAR ACCIDENT
  5. CRESTOR [Concomitant]
  6. LISINOPRIL [Concomitant]

REACTIONS (2)
  - Drug ineffective [Unknown]
  - Expired product administered [Unknown]
